FAERS Safety Report 15430428 (Version 1)
Quarter: 2018Q3

REPORT INFORMATION
  Report Type: Spontaneous
  Country: US (occurrence: US)
  Receive Date: 20180926
  Receipt Date: 20180926
  Transmission Date: 20181010
  Serious: No
  Sender: FDA-Public Use
  Company Number: US-009507513-1809USA010991

PATIENT
  Sex: Male

DRUGS (14)
  1. LEVOTHYROXINE SODIUM. [Concomitant]
     Active Substance: LEVOTHYROXINE SODIUM
  2. TRAZODONE HYDROCHLORIDE. [Concomitant]
     Active Substance: TRAZODONE HYDROCHLORIDE
  3. SERTRALINE HYDROCHLORIDE. [Concomitant]
     Active Substance: SERTRALINE HYDROCHLORIDE
  4. IPRATROPIUM BROMIDE. [Concomitant]
     Active Substance: IPRATROPIUM BROMIDE
  5. OMEGA?3 MARINE TRIGLYCERIDES [Concomitant]
     Active Substance: FISH OIL
  6. LISINOPRIL. [Concomitant]
     Active Substance: LISINOPRIL
  7. PSYLLIUM HUSK. [Concomitant]
     Active Substance: PSYLLIUM HUSK
  8. SIMVASTATIN. [Concomitant]
     Active Substance: SIMVASTATIN
  9. PROVENTIL [Suspect]
     Active Substance: ALBUTEROL
     Indication: DYSPNOEA
     Dosage: UNK
     Dates: start: 2018
  10. GABAPENTIN. [Concomitant]
     Active Substance: GABAPENTIN
  11. HYDROXYZINE PAMOATE. [Concomitant]
     Active Substance: HYDROXYZINE PAMOATE
  12. ASMANEX [Concomitant]
     Active Substance: MOMETASONE FUROATE
     Indication: ASTHMA
     Dosage: 1 PUFF TWICE DAILY
     Route: 055
  13. ASPIRIN. [Concomitant]
     Active Substance: ASPIRIN
  14. VITAMINS (UNSPECIFIED) [Concomitant]
     Active Substance: VITAMINS

REACTIONS (1)
  - Drug ineffective [Unknown]

NARRATIVE: CASE EVENT DATE: 2018
